FAERS Safety Report 6507009-2 (Version None)
Quarter: 2009Q4

REPORT INFORMATION
  Report Type: 
  Country: None (occurrence: None)
  Receive Date: 20091127
  Receipt Date: 20090818
  Transmission Date: 20100525
  Serious: Yes (Hospitalization)
  Sender: FDA-Public Use
  Company Number: US200907003831

PATIENT
  Age: 57 Year
  Sex: Female
  Weight: 81.2 kg

DRUGS (14)
  1. BYETTA [Suspect]
     Indication: TYPE 2 DIABETES MELLITUS
     Dosage: 5 UG, 2/D, SUBCUTANEOUS 10 UG, 2/D, SUBCUTANEOUS
     Route: 058
     Dates: start: 20080701, end: 20080919
  2. BYETTA [Suspect]
     Indication: TYPE 2 DIABETES MELLITUS
     Dosage: 5 UG, 2/D, SUBCUTANEOUS 10 UG, 2/D, SUBCUTANEOUS
     Route: 058
     Dates: start: 20080919, end: 20081001
  3. BYETTA [Suspect]
     Indication: TYPE 2 DIABETES MELLITUS
     Dosage: 5 UG, 2/D, SUBCUTANEOUS 10 UG, 2/D, SUBCUTANEOUS
     Route: 058
     Dates: start: 20081001
  4. METFORMIN HCL [Concomitant]
  5. GLIMEPIRIDE [Concomitant]
  6. ACTOS [Concomitant]
  7. SIMVASTATIN [Concomitant]
  8. TRICOR [Concomitant]
  9. METOPROLOL /00376902/ (METOPROLOL TARTRATE) [Concomitant]
  10. PLAVIX [Concomitant]
  11. EFFEXOR XR [Concomitant]
  12. FLAVOCOXID (FLAVOCOXID) [Concomitant]
  13. ASPIRIN [Concomitant]
  14. FISH OIL (FISH OIL) [Concomitant]

REACTIONS (2)
  - GASTROOESOPHAGEAL REFLUX DISEASE [None]
  - PRODUCT CONTAMINATION [None]
